FAERS Safety Report 25962737 (Version 1)
Quarter: 2025Q4

REPORT INFORMATION
  Report Type: Spontaneous
  Country: US (occurrence: None)
  Receive Date: 20251025
  Receipt Date: 20251025
  Transmission Date: 20260117
  Serious: Yes (Other)
  Sender: FDA-CTU
  Company Number: None

PATIENT
  Age: 78 Year
  Sex: Male
  Weight: 105.75 kg

DRUGS (22)
  1. MOUNJARO [Suspect]
     Active Substance: TIRZEPATIDE
     Indication: Diabetes mellitus
     Dosage: OTHER QUANTITY : 4 INJECTION(S);?OTHER FREQUENCY : ONCE A WEEK;?
     Route: 058
  2. MOUNJARO [Suspect]
     Active Substance: TIRZEPATIDE
     Indication: Weight decreased
  3. IRON [Suspect]
     Active Substance: IRON
  4. LISINOPRIL [Concomitant]
     Active Substance: LISINOPRIL
  5. ALLOPURINOL [Concomitant]
     Active Substance: ALLOPURINOL
  6. CHLORTHALIDONE [Concomitant]
     Active Substance: CHLORTHALIDONE
  7. SPIRONOLACTONE [Concomitant]
     Active Substance: SPIRONOLACTONE
  8. TADALAFIL [Concomitant]
     Active Substance: TADALAFIL
  9. LEVETIRACETAM [Concomitant]
     Active Substance: LEVETIRACETAM
  10. ELIQUIS [Concomitant]
     Active Substance: APIXABAN
  11. LEVOTHYROXINE [Concomitant]
     Active Substance: LEVOTHYROXINE
  12. METFORMIN [Concomitant]
     Active Substance: METFORMIN HYDROCHLORIDE
  13. ROSUVASTATIN [Concomitant]
     Active Substance: ROSUVASTATIN
  14. FARXIGA [Concomitant]
     Active Substance: DAPAGLIFLOZIN PROPANEDIOL
  15. ZENPEP [Concomitant]
     Active Substance: PANCRELIPASE AMYLASE\PANCRELIPASE LIPASE\PANCRELIPASE PROTEASE
  16. TESTOSTERONE [Concomitant]
     Active Substance: TESTOSTERONE
  17. AMLODIPINE [Concomitant]
     Active Substance: AMLODIPINE BESYLATE
  18. NADH+CoQ10 [Concomitant]
  19. VITAMINS [Concomitant]
     Active Substance: VITAMINS
  20. VITAMIN D3 [Concomitant]
     Active Substance: CHOLECALCIFEROL
  21. OMEGA 3 [Concomitant]
     Active Substance: CAPSAICIN
  22. DEXPANTHENOL\NIACINAMIDE\PYRIDOXINE HYDROCHLORIDE\RIBOFLAVIN 5^-PHOSPH [Concomitant]
     Active Substance: DEXPANTHENOL\NIACINAMIDE\PYRIDOXINE HYDROCHLORIDE\RIBOFLAVIN 5^-PHOSPHATE SODIUM\THIAMINE HYDROCHLOR

REACTIONS (8)
  - Infusion related reaction [None]
  - Diarrhoea [None]
  - Blood pressure decreased [None]
  - Heart rate increased [None]
  - Therapeutic product effect incomplete [None]
  - Haemoglobin decreased [None]
  - Weight decreased [None]
  - Serum ferritin decreased [None]

NARRATIVE: CASE EVENT DATE: 20250513
